FAERS Safety Report 16743629 (Version 1)
Quarter: 2019Q3

REPORT INFORMATION
  Report Type: Spontaneous
  Country: GB (occurrence: GB)
  Receive Date: 20190827
  Receipt Date: 20190827
  Transmission Date: 20191005
  Serious: Yes (Other)
  Sender: FDA-Public Use
  Company Number: GB-SUN PHARMACEUTICAL INDUSTRIES LTD-2019RR-218929

PATIENT
  Age: 31 Year
  Sex: Male
  Weight: 105.22 kg

DRUGS (3)
  1. PEPTO-BISMOL [Concomitant]
     Active Substance: BISMUTH SUBSALICYLATE
     Indication: PRODUCT USED FOR UNKNOWN INDICATION
     Dosage: ()UNK
     Route: 065
  2. WOCKHARDT UK CLARITHOMYCIN [Suspect]
     Active Substance: CLARITHROMYCIN
     Indication: SINUSITIS
     Dosage: 500 MILLIGRAM, UNK
     Route: 048
     Dates: start: 20190716
  3. VENLAFAXINE [Suspect]
     Active Substance: VENLAFAXINE HYDROCHLORIDE
     Indication: PRODUCT USED FOR UNKNOWN INDICATION
     Dosage: ()UNK
     Route: 065

REACTIONS (8)
  - Fatigue [Unknown]
  - Therapeutic product effect decreased [Unknown]
  - Crying [Unknown]
  - Malaise [Unknown]
  - Abdominal pain upper [Unknown]
  - Inhibitory drug interaction [Unknown]
  - Depressed mood [Unknown]
  - Abdominal discomfort [Not Recovered/Not Resolved]

NARRATIVE: CASE EVENT DATE: 20190718
